FAERS Safety Report 8000678-X (Version None)
Quarter: 2011Q4

REPORT INFORMATION
  Report Type: 
  Country: None (occurrence: None)
  Receive Date: 20111222
  Receipt Date: 20111213
  Transmission Date: 20120403
  Serious: Yes (Other)
  Sender: FDA-Public Use
  Company Number: US-BAYER-US-2005-027448

PATIENT
  Age: 22 Year
  Sex: Female
  Weight: 92.971 kg

DRUGS (3)
  1. YASMIN [Suspect]
     Indication: CONTRACEPTION
     Dosage: 1 TAB(S), 1X/DAY [DAILY DOSE: 1 TAB(S)]
     Route: 048
     Dates: start: 20040601, end: 20051216
  2. YASMIN [Suspect]
     Indication: PREMENSTRUAL SYNDROME
  3. PROVENTIL [Concomitant]
     Indication: ASTHMA
     Dosage: UNK
     Dates: start: 19930101

REACTIONS (1)
  - DEEP VEIN THROMBOSIS [None]
